FAERS Safety Report 9560594 (Version 1)
Quarter: 2013Q3

REPORT INFORMATION
  Report Type: Spontaneous
  Country: US (occurrence: US)
  Receive Date: 20130927
  Receipt Date: 20130927
  Transmission Date: 20140515
  Serious: No
  Sender: FDA-Public Use
  Company Number: US-BIOGENIDEC-2013BI052513

PATIENT
  Sex: 0

DRUGS (5)
  1. TECFIDERA [Suspect]
     Indication: MULTIPLE SCLEROSIS
     Route: 048
     Dates: start: 20130521
  2. CYMBALTA [Concomitant]
  3. GABAPENTIN [Concomitant]
  4. FLUTICASONE [Concomitant]
  5. OXYBUTYNIN [Concomitant]

REACTIONS (1)
  - Dyspepsia [Not Recovered/Not Resolved]
